FAERS Safety Report 16871538 (Version 1)
Quarter: 2019Q4

REPORT INFORMATION
  Report Type: Spontaneous
  Country: GB (occurrence: GB)
  Receive Date: 20191001
  Receipt Date: 20191001
  Transmission Date: 20200122
  Serious: Yes (Death)
  Sender: FDA-Public Use
  Company Number: GB-BIOGEN-2019BI00789096

PATIENT
  Age: 1 Day
  Sex: Male

DRUGS (1)
  1. TYSABRI [Suspect]
     Active Substance: NATALIZUMAB
     Indication: MATERNAL EXPOSURE TIMING UNSPECIFIED
     Route: 064
     Dates: start: 20150227

REACTIONS (2)
  - Foetal exposure during pregnancy [Fatal]
  - Ileal perforation [Fatal]

NARRATIVE: CASE EVENT DATE: 20190223
